FAERS Safety Report 9762862 (Version 2)
Quarter: 2014Q2

REPORT INFORMATION
  Report Type: Spontaneous
  Country: US (occurrence: US)
  Receive Date: 20131216
  Receipt Date: 20140606
  Transmission Date: 20141212
  Serious: Yes (Hospitalization)
  Sender: FDA-Public Use
  Company Number: US-B.I. PHARMACEUTICALS,INC./RIDGEFIELD-2013-BI-41767BP

PATIENT
  Sex: Female
  Weight: 58.97 kg

DRUGS (14)
  1. PRADAXA [Suspect]
     Indication: ATRIAL FIBRILLATION
     Dosage: 300 MG
     Route: 065
     Dates: start: 20111117, end: 20120512
  2. AMIODARONE [Concomitant]
     Route: 065
  3. BENICAR/HYDROCHLOROTHIAZIDE [Concomitant]
     Route: 065
  4. METOPROLOL [Concomitant]
     Dosage: 25 MG
     Route: 065
  5. DONEPEZIL [Concomitant]
     Dosage: 10 MG
     Route: 065
     Dates: start: 2002
  6. LEVOTHYROXINE [Concomitant]
     Dosage: 125 MCG
     Route: 065
     Dates: start: 2002
  7. KLOR-CON [Concomitant]
     Dosage: 40 MEQ
     Route: 065
     Dates: start: 2000
  8. ECOTRIN [Concomitant]
     Dosage: 81 MG
     Route: 065
     Dates: start: 2004
  9. CALCIUM [Concomitant]
     Route: 065
     Dates: start: 2000
  10. COENZYME Q10 [Concomitant]
     Route: 065
  11. OSTEOFLEX [Concomitant]
     Route: 065
     Dates: start: 2000
  12. MAGNESIUM [Concomitant]
     Route: 065
  13. ZINC [Concomitant]
     Route: 065
  14. CENTRUM SILVER [Concomitant]
     Route: 065
     Dates: start: 2000

REACTIONS (4)
  - Gastrointestinal haemorrhage [Unknown]
  - Coagulopathy [Unknown]
  - Anaemia [Unknown]
  - Epistaxis [Unknown]
